FAERS Safety Report 15980553 (Version 3)
Quarter: 2019Q1

REPORT INFORMATION
  Report Type: Report from Study
  Country: DE (occurrence: DE)
  Receive Date: 20190219
  Receipt Date: 20190318
  Transmission Date: 20190418
  Serious: Yes (Hospitalization)
  Sender: FDA-Public Use
  Company Number: DE-PFIZER INC-2019018952

PATIENT
  Age: 76 Year
  Sex: Female
  Weight: 70 kg

DRUGS (11)
  1. CARMEN [LERCANIDIPINE HYDROCHLORIDE] [Concomitant]
     Indication: HYPERTENSION
     Dosage: DOSE 20-10 MG, AS NEEDED
     Route: 048
     Dates: start: 20140630
  2. DOCETAXEL. [Suspect]
     Active Substance: DOCETAXEL
     Indication: BREAST CANCER
     Dosage: 130 MG, MONTHLY
     Route: 065
     Dates: start: 20171222
  3. BISOPROLOL [Concomitant]
     Active Substance: BISOPROLOL
     Indication: TACHYCARDIA
     Dosage: UNK
     Route: 048
     Dates: start: 19970630
  4. ELIQUIS [Concomitant]
     Active Substance: APIXABAN
     Indication: DEEP VEIN THROMBOSIS
     Dosage: 105 MG, AS NEEDED
     Route: 048
     Dates: start: 20140630
  5. TRASTUZUMAB. [Suspect]
     Active Substance: TRASTUZUMAB
     Dosage: 399.6 MG, MONTHLY
     Route: 042
     Dates: start: 20171222, end: 20190113
  6. PERTUZUMAB. [Suspect]
     Active Substance: PERTUZUMAB
     Indication: BREAST CANCER
     Dosage: 420 MG, MONTHLY
     Route: 042
     Dates: start: 20171222, end: 20190113
  7. PARACETAMOL [Concomitant]
     Active Substance: ACETAMINOPHEN
     Indication: PAIN
     Route: 048
  8. TRASTUZUMAB. [Suspect]
     Active Substance: TRASTUZUMAB
     Indication: BREAST CANCER
     Dosage: 388.5 MG, MONTHLY
     Route: 042
     Dates: start: 20171222
  9. TRASTUZUMAB. [Suspect]
     Active Substance: TRASTUZUMAB
     Dosage: 390 MG, 1X/DAY
     Route: 042
  10. DEKRISTOL [Concomitant]
     Active Substance: CHOLECALCIFEROL
     Dosage: 1 DF, WEEKLY
     Route: 048
     Dates: start: 20171222
  11. PANTOZOL [Concomitant]
     Active Substance: PANTOPRAZOLE SODIUM
     Indication: PROPHYLAXIS
     Dosage: 20 MG, AS NEEDED
     Route: 048
     Dates: start: 20140630

REACTIONS (6)
  - Fall [Unknown]
  - Leukopenia [Recovered/Resolved]
  - Polyneuropathy [Not Recovered/Not Resolved]
  - Cardiac failure [Not Recovered/Not Resolved]
  - Foot deformity [Recovered/Resolved]
  - Pleural effusion [Not Recovered/Not Resolved]

NARRATIVE: CASE EVENT DATE: 20171222
